FAERS Safety Report 4290015-9 (Version None)
Quarter: 2004Q1

REPORT INFORMATION
  Report Type: 
  Country: None (occurrence: None)
  Receive Date: 20040209
  Receipt Date: 20040121
  Transmission Date: 20041129
  Serious: Yes (Hospitalization)
  Sender: FDA-Public Use
  Company Number: 2004UW01188

PATIENT
  Age: 50 Year
  Sex: Male

DRUGS (1)
  1. IRESSA [Suspect]
     Indication: TONSIL CANCER
     Dosage: 250 MG PO
     Route: 048
     Dates: start: 20030901

REACTIONS (1)
  - PERICARDIAL HAEMORRHAGE [None]
